FAERS Safety Report 6042386-0 (Version None)
Quarter: 2009Q1

REPORT INFORMATION
  Report Type: 
  Country: None (occurrence: None)
  Receive Date: 20090116
  Receipt Date: 20090113
  Transmission Date: 20090719
  Serious: Yes (Death, Other)
  Sender: FDA-Public Use
  Company Number: FR-CELGENEUS-056-20785-08111081

PATIENT
  Sex: Male

DRUGS (6)
  1. THALIDOMIDE [Suspect]
     Indication: MULTIPLE MYELOMA
     Route: 048
     Dates: start: 20070118, end: 20080909
  2. LASILIX [Concomitant]
     Indication: RENAL FAILURE
     Route: 048
     Dates: end: 20080909
  3. ZYLORIC [Concomitant]
     Route: 048
     Dates: end: 20080909
  4. KARDEGIC [Concomitant]
     Route: 048
     Dates: end: 20080909
  5. ELIDUR [Concomitant]
     Indication: HYPERCHOLESTEROLAEMIA
     Route: 048
     Dates: end: 20080909
  6. COSUDEX [Concomitant]
     Indication: PROSTATE CANCER
     Route: 048
     Dates: end: 20080909

REACTIONS (3)
  - ARTERIOVENOUS FISTULA [None]
  - CARDIO-RESPIRATORY ARREST [None]
  - PULMONARY EMBOLISM [None]
